FAERS Safety Report 6815412-6 (Version None)
Quarter: 2010Q3

REPORT INFORMATION
  Report Type: 
  Country: None (occurrence: None)
  Receive Date: 20100702
  Receipt Date: 20100629
  Transmission Date: 20110219
  Serious: Yes (Other)
  Sender: FDA-Public Use
  Company Number: US-ELI_LILLY_AND_COMPANY-US201006007778

PATIENT
  Sex: Male

DRUGS (3)
  1. HUMALOG [Suspect]
     Indication: TYPE 2 DIABETES MELLITUS
     Dosage: UNK, AS NEEDED
     Dates: start: 20000629
  2. HUMALOG [Suspect]
     Dosage: UNK, AS NEEDED
     Dates: start: 20000629
  3. LANTUS [Concomitant]
     Dosage: UNK, EACH MORNING
     Dates: start: 20000629

REACTIONS (6)
  - BLOOD GLUCOSE INCREASED [None]
  - DRUG DOSE OMISSION [None]
  - DRUG INEFFECTIVE [None]
  - HYPERTENSION [None]
  - INTENTIONAL DRUG MISUSE [None]
  - LIVER TRANSPLANT [None]
